FAERS Safety Report 7673860-9 (Version None)
Quarter: 2011Q3

REPORT INFORMATION
  Report Type: 
  Country: None (occurrence: None)
  Receive Date: 20110810
  Receipt Date: 20110801
  Transmission Date: 20111222
  Serious: Yes (Hospitalization)
  Sender: FDA-Public Use
  Company Number: DE-ASTRAZENECA-2011SE37748

PATIENT
  Sex: Male

DRUGS (8)
  1. ACETAMINOPHEN [Concomitant]
     Indication: INFLUENZA
     Dosage: AS REQUIRED
     Route: 048
     Dates: start: 20110531, end: 20110604
  2. VANDETANIB [Suspect]
     Route: 048
     Dates: start: 20110630
  3. VANDETANIB [Suspect]
     Indication: THYROID CANCER
     Route: 048
     Dates: start: 20110512, end: 20110622
  4. ROCALTROL [Concomitant]
     Indication: MINERAL SUPPLEMENTATION
     Route: 048
  5. ASPERIN COMPLEX [Concomitant]
     Indication: INFLUENZA
     Dosage: AS REQUIRED
     Route: 048
     Dates: start: 20110531, end: 20110531
  6. CALCIUM CARBONATE [Concomitant]
     Indication: MINERAL SUPPLEMENTATION
     Route: 048
  7. LEVOTHYROXINE SODIUM [Concomitant]
     Indication: THYROID HORMONE REPLACEMENT THERAPY
     Route: 048
     Dates: start: 20110526
  8. IBUPROFEN [Concomitant]
     Indication: INFLUENZA
     Dosage: AS REQUIRED
     Route: 048
     Dates: start: 20110602, end: 20110604

REACTIONS (1)
  - APPENDICITIS [None]
